FAERS Safety Report 7651518-X (Version None)
Quarter: 2011Q3

REPORT INFORMATION
  Report Type: 
  Country: None (occurrence: None)
  Receive Date: 20110802
  Receipt Date: 20110728
  Transmission Date: 20111222
  Serious: Yes (Death, Other)
  Sender: FDA-Public Use
  Company Number: PHHY2011NL07488

PATIENT
  Sex: Male

DRUGS (13)
  1. ZOMETA [Suspect]
     Dosage: 4MG/5ML, UNK
     Dates: start: 20110112
  2. METOPROLOL TARTRATE [Concomitant]
  3. CASODEX [Concomitant]
     Dosage: 150 MG, DAILY
  4. ORAMORPH SR [Concomitant]
  5. ZOMETA [Suspect]
     Indication: PROSTATE CANCER METASTATIC
     Dosage: 4 MG/5ML, QMO
     Dates: start: 20101201
  6. FENTANYL [Concomitant]
  7. LHRH [Concomitant]
  8. ZOMETA [Suspect]
     Dosage: 4MG/5ML, QMO
     Dates: start: 20110126
  9. LEUPROLIDE ACETATE [Concomitant]
     Dosage: 30 MG, ONCE EVERY 6 MONTHS
     Route: 058
  10. LOSARTAN POTASSIUM [Concomitant]
  11. CASODEX [Concomitant]
     Dosage: 150 MG, DAILY
  12. TAMSULOSIN HCL [Concomitant]
  13. PREDNISONE [Concomitant]
     Dosage: 2 DF, UNK

REACTIONS (7)
  - ANAEMIA [None]
  - NEOPLASM MALIGNANT [None]
  - HEPATIC FUNCTION ABNORMAL [None]
  - PROSTATIC SPECIFIC ANTIGEN INCREASED [None]
  - DEATH [None]
  - LEUKOERYTHROBLASTOSIS [None]
  - NEOPLASM PROGRESSION [None]
